FAERS Safety Report 8412531-8 (Version None)
Quarter: 2012Q2

REPORT INFORMATION
  Report Type: 
  Country: None (occurrence: None)
  Receive Date: 20120605
  Receipt Date: 20120521
  Transmission Date: 20120825
  Serious: No
  Sender: FDA-Public Use
  Company Number: US-AMGEN-USASP2012016736

PATIENT
  Age: 67 Year
  Sex: Female

DRUGS (7)
  1. TOPROL-XL [Concomitant]
     Dosage: 50 MG, UNK
  2. TRAMADOL HCL [Concomitant]
     Dosage: 50 MG, UNK
  3. DIGOXIN [Concomitant]
     Dosage: 0.25 MG, UNK
  4. METHOTREXATE [Concomitant]
     Dosage: UNK
  5. PLAQUENIL [Concomitant]
     Dosage: 200 MG, UNK
  6. ENBREL [Suspect]
     Indication: RHEUMATOID ARTHRITIS
     Dosage: 50 MG, UNK
     Dates: start: 20110801
  7. COUMADIN [Concomitant]
     Dosage: 4 MG, UNK

REACTIONS (4)
  - OEDEMA PERIPHERAL [None]
  - PRURITUS [None]
  - WEIGHT DECREASED [None]
  - DRUG INEFFECTIVE [None]
